FAERS Safety Report 5085669-3 (Version None)
Quarter: 2006Q3

REPORT INFORMATION
  Report Type: 
  Country: None (occurrence: None)
  Receive Date: 20060822
  Receipt Date: 20060804
  Transmission Date: 20061208
  Serious: Yes (Other)
  Sender: FDA-Public Use
  Company Number: 2006UW15817

PATIENT
  Age: 43 Year
  Sex: Female

DRUGS (4)
  1. SYMBICORT TURBUHALER [Suspect]
     Indication: ASTHMA
     Route: 055
     Dates: start: 20050801
  2. NASACORT [Concomitant]
     Route: 045
  3. SINGULAIR [Concomitant]
     Indication: ASTHMA
     Dosage: 1 TAB DAILY
     Route: 048
  4. VENTOLIN [Concomitant]
     Dates: start: 20060804

REACTIONS (2)
  - DYSPNOEA [None]
  - PULMONARY CONGESTION [None]
